FAERS Safety Report 10145833 (Version 1)
Quarter: 2014Q2

REPORT INFORMATION
  Report Type: Spontaneous
  Country: US (occurrence: US)
  Receive Date: 20140501
  Receipt Date: 20140501
  Transmission Date: 20141212
  Serious: No
  Sender: FDA-Public Use
  Company Number: US-ABBVIE-14P-163-1209323-00

PATIENT
  Sex: Male
  Weight: 22.25 kg

DRUGS (3)
  1. CREON [Suspect]
     Indication: PANCREATIC INSUFFICIENCY
     Dates: start: 201209
  2. BACTRIUM DS [Suspect]
     Indication: LUNG INFECTION
  3. OTHER CONCOMITANT MEDICATIONS [Concomitant]
     Indication: PRODUCT USED FOR UNKNOWN INDICATION

REACTIONS (6)
  - Weight decreased [Not Recovered/Not Resolved]
  - Drug hypersensitivity [Unknown]
  - Lung infection [Unknown]
  - Nasal discomfort [Unknown]
  - Product odour abnormal [Unknown]
  - Abdominal pain [Not Recovered/Not Resolved]
